FAERS Safety Report 5045152-8 (Version None)
Quarter: 2006Q3

REPORT INFORMATION
  Report Type: 
  Country: None (occurrence: None)
  Receive Date: 20060707
  Receipt Date: 20060612
  Transmission Date: 20061208
  Serious: Yes (Death, Hospitalization)
  Sender: FDA-Public Use
  Company Number: US-SANOFI-SYNTHELABO-A03200603794

PATIENT
  Sex: Male

DRUGS (9)
  1. LASIX [Concomitant]
     Dosage: UNK
     Route: 065
  2. HUMULIN 70/30 [Concomitant]
     Dosage: UNK
     Route: 058
  3. COREG [Concomitant]
     Dosage: UNK
     Route: 048
  4. VYTORIN [Concomitant]
     Dosage: UNK
     Route: 048
  5. LANOXIN [Concomitant]
     Dosage: UNK
     Route: 048
  6. IMDUR [Concomitant]
     Dosage: UNK
     Route: 048
  7. ALLOPURINOL [Concomitant]
     Dosage: UNK
     Route: 048
  8. COUMADIN [Suspect]
     Indication: ATRIAL FIBRILLATION
     Route: 048
  9. PLAVIX [Suspect]
     Indication: CORONARY ARTERY DISEASE
     Route: 048

REACTIONS (1)
  - MYOCARDIAL INFARCTION [None]
